FAERS Safety Report 5483820-4 (Version None)
Quarter: 2007Q4

REPORT INFORMATION
  Report Type: 
  Country: None (occurrence: None)
  Receive Date: 20071010
  Receipt Date: 20071003
  Transmission Date: 20080405
  Serious: Yes (Death, Hospitalization)
  Sender: FDA-Public Use
  Company Number: 2007-03142

PATIENT
  Age: 67 Year
  Sex: Male

DRUGS (1)
  1. VELCADE [Suspect]
     Indication: MULTIPLE MYELOMA
     Dosage: 1.30 MG/M2
     Dates: start: 20061106, end: 20061117

REACTIONS (9)
  - BRONCHOSCOPY ABNORMAL [None]
  - CULTURE POSITIVE [None]
  - DISEASE PROGRESSION [None]
  - INFECTION IN AN IMMUNOCOMPROMISED HOST [None]
  - MULTIPLE MYELOMA [None]
  - PARAINFLUENZAE VIRUS INFECTION [None]
  - PNEUMONIA [None]
  - RESPIRATORY FAILURE [None]
  - STAPHYLOCOCCAL INFECTION [None]
